FAERS Safety Report 9097050 (Version 2)
Quarter: 2013Q2

REPORT INFORMATION
  Report Type: Spontaneous
  Country: GB (occurrence: None)
  Receive Date: 20130123
  Receipt Date: 20130530
  Transmission Date: 20140414
  Serious: Yes (Hospitalization)
  Sender: FDA-Public Use
  Company Number: GER/UKI/13/0027442

PATIENT
  Age: 47 Year
  Sex: Female

DRUGS (9)
  1. QUETIAPINE [Suspect]
     Indication: PRODUCT USED FOR UNKNOWN INDICATION
  2. ATORVASTATIN [Suspect]
     Indication: HEREDITARY DISORDER
     Dates: start: 20121218
  3. CALCIUM AND VITAMIN D [Concomitant]
  4. CIPRALEX (ESCITALOPRAM OXALATE) [Concomitant]
  5. VITAMIN B SUBSTANCES (VITAMIN B COMPLEX) [Concomitant]
  6. FOLIC ACID (FOLIC ACID) [Concomitant]
  7. LITHIUM (ILITHIUM) [Concomitant]
  8. PIRITON (CHLORPHENAMINE MALEATE) [Concomitant]
  9. PREDNISOLONE (PREDNISOLONE) [Concomitant]

REACTIONS (5)
  - Dyspnoea [None]
  - Swelling face [None]
  - Loss of consciousness [None]
  - Product substitution issue [None]
  - Blood cholesterol increased [None]
